FAERS Safety Report 18865797 (Version 1)
Quarter: 2021Q1

REPORT INFORMATION
  Report Type: Spontaneous
  Country: US (occurrence: US)
  Receive Date: 20210208
  Receipt Date: 20210208
  Transmission Date: 20210420
  Serious: Yes (Hospitalization)
  Sender: FDA-Public Use
  Company Number: None

PATIENT
  Sex: Female

DRUGS (25)
  1. COLESEVELAM [Concomitant]
     Active Substance: COLESEVELAM
  2. FUROSEMIDE. [Concomitant]
     Active Substance: FUROSEMIDE
  3. METHYLPRED [Concomitant]
     Active Substance: METHYLPREDNISOLONE
  4. AMOX/K CLAV [Concomitant]
     Active Substance: AMOXICILLIN\CLAVULANATE POTASSIUM
  5. BETHAMETH VAL [Concomitant]
  6. FLUTICASONE. [Concomitant]
     Active Substance: FLUTICASONE
  7. KETOCONAZOLE. [Concomitant]
     Active Substance: KETOCONAZOLE
  8. PERMETHRIN. [Concomitant]
     Active Substance: PERMETHRIN
  9. RABEPRAZOLE [Concomitant]
     Active Substance: RABEPRAZOLE
  10. XYZAL [Concomitant]
     Active Substance: LEVOCETIRIZINE DIHYDROCHLORIDE
  11. DOXYLAMINE SUCCINAT [Concomitant]
  12. LOSARTAN POT [Concomitant]
     Active Substance: LOSARTAN POTASSIUM
  13. SYNTHROID [Concomitant]
     Active Substance: LEVOTHYROXINE SODIUM
  14. WELCHOL [Concomitant]
     Active Substance: COLESEVELAM HYDROCHLORIDE
  15. AMOXICILLIN. [Concomitant]
     Active Substance: AMOXICILLIN
  16. ESTRADIOL CRE [Concomitant]
  17. METOPROLOL ER [Concomitant]
     Active Substance: METOPROLOL SUCCINATE
  18. MONTELUKAST [Concomitant]
     Active Substance: MONTELUKAST SODIUM
  19. NYSTAT/TRIAM CRE [Concomitant]
  20. DOFETILIDE 500MCG CAP [Suspect]
     Active Substance: DOFETILIDE
     Indication: PRODUCT USED FOR UNKNOWN INDICATION
     Route: 048
     Dates: start: 20180914
  21. AMLODIPINE [Concomitant]
     Active Substance: AMLODIPINE BESYLATE
  22. AZEL/FLUTIC SPR [Concomitant]
  23. XARELTO [Concomitant]
     Active Substance: RIVAROXABAN
  24. COLESTIPOL [Concomitant]
     Active Substance: COLESTIPOL
  25. KLOR?CON M10 ER [Concomitant]

REACTIONS (6)
  - Drug level increased [None]
  - Heart rate increased [None]
  - Arrhythmia [None]
  - Drug interaction [None]
  - Blood pressure increased [None]
  - Drug ineffective [None]
